FAERS Safety Report 7369324-2 (Version None)
Quarter: 2011Q1

REPORT INFORMATION
  Report Type: 
  Country: None (occurrence: None)
  Receive Date: 20110323
  Receipt Date: 20110317
  Transmission Date: 20110831
  Serious: Yes (Other)
  Sender: FDA-Public Use
  Company Number: B0706856A

PATIENT
  Age: 25 Year
  Sex: Female

DRUGS (2)
  1. LAMICTAL [Suspect]
     Indication: EPILEPSY
     Route: 048
  2. ORAL CONTRACEPTIVE [Suspect]
     Indication: CONTRACEPTION
     Route: 048

REACTIONS (2)
  - EPILEPSY [None]
  - DRUG INTERACTION [None]
